FAERS Safety Report 6995275-9 (Version None)
Quarter: 2010Q3

REPORT INFORMATION
  Report Type: 
  Country: None (occurrence: None)
  Receive Date: 20100915
  Receipt Date: 20100830
  Transmission Date: 20110219
  Serious: Yes (Hospitalization)
  Sender: FDA-Public Use
  Company Number: AUR-APL-2010-02234

PATIENT
  Age: 82 Year
  Sex: Female
  Weight: 49.43 kg

DRUGS (12)
  1. LISINOPRIL [Suspect]
     Indication: ATRIAL FIBRILLATION
     Dosage: 20MG, DAILY, ORAL
     Route: 048
     Dates: start: 20100101
  2. AZULFIDINE EN-TABS [Suspect]
     Indication: COLITIS ULCERATIVE
  3. SULFADIAZINE [Suspect]
     Indication: COLITIS ULCERATIVE
     Dates: end: 20100601
  4. FLAGYL [Suspect]
     Indication: PRODUCT USED FOR UNKNOWN INDICATION
  5. FLAGYL [Suspect]
     Indication: PRODUCT USED FOR UNKNOWN INDICATION
  6. CARDIZEM [Suspect]
     Indication: ATRIAL FIBRILLATION
     Dates: start: 20100101
  7. DIGOXIN [Suspect]
     Indication: ATRIAL FIBRILLATION
     Dosage: ORAL
     Route: 048
     Dates: start: 20100101
  8. AMIODARONE [Suspect]
     Indication: ATRIAL FIBRILLATION
     Dosage: INTRAVENOUS
     Route: 042
     Dates: start: 20100101
  9. SYNTHROID [Suspect]
     Indication: THYROIDECTOMY
     Dosage: 112MCG, ORAL
     Route: 048
     Dates: start: 20040101
  10. SYNTHROID [Suspect]
     Indication: THYROIDECTOMY
     Dosage: 137MCG, ORAL
     Route: 048
     Dates: start: 20091201
  11. PREDNISONE [Suspect]
     Indication: POLYMYALGIA RHEUMATICA
  12. MACROBID [Suspect]
     Indication: SEPSIS
     Dates: start: 20100101

REACTIONS (12)
  - BLOOD POTASSIUM DECREASED [None]
  - DEAFNESS [None]
  - DEPRESSION [None]
  - DIZZINESS [None]
  - DRUG HYPERSENSITIVITY [None]
  - MALAISE [None]
  - MUSCULAR WEAKNESS [None]
  - PAIN [None]
  - POLYMYALGIA RHEUMATICA [None]
  - PRODUCT SUBSTITUTION ISSUE [None]
  - SEPSIS [None]
  - VISION BLURRED [None]
